FAERS Safety Report 8267782-2 (Version None)
Quarter: 2012Q2

REPORT INFORMATION
  Report Type: 
  Country: None (occurrence: None)
  Receive Date: 20120405
  Receipt Date: 20120405
  Transmission Date: 20120825
  Serious: Yes (Hospitalization)
  Sender: FDA-Public Use
  Company Number: None

PATIENT
  Sex: Female
  Weight: 89.4 kg

DRUGS (1)
  1. CISPLATIN [Suspect]
     Dosage: 152 MG
     Dates: end: 20120320

REACTIONS (1)
  - FEBRILE NEUTROPENIA [None]
